FAERS Safety Report 5260799-1 (Version None)
Quarter: 2007Q1

REPORT INFORMATION
  Report Type: 
  Country: None (occurrence: None)
  Receive Date: 20070309
  Receipt Date: 20070228
  Transmission Date: 20070707
  Serious: No
  Sender: FDA-Public Use
  Company Number: 2006UW10934

PATIENT
  Sex: Female
  Weight: 70.5 kg

DRUGS (3)
  1. SEROQUEL [Suspect]
     Route: 048
  2. ABILIFY [Concomitant]
  3. RISPERDAL [Concomitant]

REACTIONS (1)
  - DIABETES MELLITUS [None]
